FAERS Safety Report 9412365 (Version 1)
Quarter: 2013Q3

REPORT INFORMATION
  Report Type: Spontaneous
  Country: US (occurrence: US)
  Receive Date: 20130722
  Receipt Date: 20130722
  Transmission Date: 20140515
  Serious: No
  Sender: FDA-Public Use
  Company Number: US-BAUSCH-BL-2013-000646

PATIENT
  Age: 67 Year
  Sex: Female

DRUGS (2)
  1. ISTALOL [Suspect]
     Indication: GLAUCOMA
     Dosage: 1 DROP; ONCE DAILY; OPHTHALMIC
     Route: 047
     Dates: start: 201111, end: 20120706
  2. SYNTHROID [Concomitant]
     Indication: HYPERTHYROIDISM

REACTIONS (5)
  - Lung cyst [Unknown]
  - Throat tightness [Recovered/Resolved]
  - Cough [Recovered/Resolved]
  - Rhinorrhoea [Recovered/Resolved]
  - Ear congestion [Recovered/Resolved]
